FAERS Safety Report 8562528 (Version 5)
Quarter: 2012Q4

REPORT INFORMATION
  Report Type: Spontaneous
  Country: CZ (occurrence: None)
  Receive Date: 20120508
  Receipt Date: 20120924
  Transmission Date: 20130627
  Serious: Yes (Hospitalization, Other)
  Sender: FDA-Public Use
  Company Number: NGX_01078_2012

PATIENT
  Sex: Female
  Weight: 82 kg

DRUGS (10)
  1. QUTENZA [Suspect]
     Indication: DIABETIC NEUROPATHY
     Dosage: (DF [BIMONTHLY APPLICATION])
     Route: 061
     Dates: start: 20120209, end: 20120209
  2. LANTUS [Concomitant]
  3. HUMULIN R [Concomitant]
  4. AMPRILAN [Concomitant]
  5. ASPIRIN [Concomitant]
  6. NITROFURANTOIN [Concomitant]
  7. INDAP [Concomitant]
  8. PRICORON [Concomitant]
  9. VASOCARDIN [Concomitant]
  10. KALNORMIN [Concomitant]

REACTIONS (12)
  - Hypertension [None]
  - Condition aggravated [None]
  - Chest pain [None]
  - Urinary tract infection [None]
  - Hypokalaemia [None]
  - Blood glucose increased [None]
  - Blood calcium decreased [None]
  - Renal cyst [None]
  - Foreign body [None]
  - Hepatic steatosis [None]
  - Osteoarthritis [None]
  - Phlebolith [None]
